FAERS Safety Report 16706990 (Version 2)
Quarter: 2019Q3

REPORT INFORMATION
  Report Type: Spontaneous
  Country: US (occurrence: US)
  Receive Date: 20190815
  Receipt Date: 20190903
  Transmission Date: 20191004
  Serious: No
  Sender: FDA-Public Use
  Company Number: US-SUNOVION-2019SUN003238

PATIENT

DRUGS (2)
  1. LATUDA [Suspect]
     Active Substance: LURASIDONE HYDROCHLORIDE
     Route: 048
  2. HALDOL [Concomitant]
     Active Substance: HALOPERIDOL

REACTIONS (5)
  - White blood cell disorder [Unknown]
  - Renal disorder [Unknown]
  - Myalgia [Recovered/Resolved]
  - White blood cell count decreased [Unknown]
  - Pain [Unknown]
